FAERS Safety Report 23570052 (Version 1)
Quarter: 2024Q1

REPORT INFORMATION
  Report Type: Spontaneous
  Country: FR (occurrence: FR)
  Receive Date: 20240227
  Receipt Date: 20240227
  Transmission Date: 20240410
  Serious: Yes (Death)
  Sender: FDA-Public Use
  Company Number: FR-AFSSAPS-MP2023002031

PATIENT
  Sex: Female

DRUGS (2)
  1. MORPHINE [Suspect]
     Active Substance: MORPHINE
     Indication: Analgesic therapy
     Dosage: 1 MILLILITER, IN TOTAL
     Route: 040
     Dates: start: 20231004, end: 20231005
  2. MORPHINE [Suspect]
     Active Substance: MORPHINE
     Dosage: 1.5 MILLILITER, Q1H
     Route: 040
     Dates: start: 20231004, end: 20231005

REACTIONS (5)
  - Product communication issue [Fatal]
  - Incorrect dose administered [Fatal]
  - Product administration error [Fatal]
  - Drug delivery system issue [Fatal]
  - Coma [Fatal]

NARRATIVE: CASE EVENT DATE: 20231004
